FAERS Safety Report 18412714 (Version 2)
Quarter: 2020Q4

REPORT INFORMATION
  Report Type: Spontaneous
  Country: US (occurrence: US)
  Receive Date: 20201021
  Receipt Date: 20201023
  Transmission Date: 20210114
  Serious: No
  Sender: FDA-Public Use
  Company Number: US-TEVA-2020-US-1839762

PATIENT
  Age: 29 Year
  Sex: Female

DRUGS (1)
  1. BUPRENORPHINE. [Suspect]
     Active Substance: BUPRENORPHINE
     Dosage: 20 MCG / HR
     Route: 062
     Dates: start: 2020

REACTIONS (6)
  - Application site erythema [Not Recovered/Not Resolved]
  - Skin weeping [Not Recovered/Not Resolved]
  - Product prescribing error [Unknown]
  - Product adhesion issue [Unknown]
  - Application site irritation [Not Recovered/Not Resolved]
  - Application site swelling [Not Recovered/Not Resolved]

NARRATIVE: CASE EVENT DATE: 2020
